FAERS Safety Report 4313037-8 (Version None)
Quarter: 2004Q1

REPORT INFORMATION
  Report Type: 
  Country: None (occurrence: None)
  Receive Date: 20040304
  Receipt Date: 20040224
  Transmission Date: 20041129
  Serious: Yes (Death, Hospitalization)
  Sender: FDA-Public Use
  Company Number: 163-20785-04010163

PATIENT
  Age: 52 Year
  Sex: Female

DRUGS (3)
  1. THALOMID [Suspect]
     Indication: ANTIDIARRHOEAL SUPPORTIVE CARE
     Dosage: 400 MG, QHS, ORAL; 300 MG, QHS, ORAL
     Route: 048
     Dates: start: 20030309, end: 20030527
  2. THALOMID [Suspect]
     Indication: ANTIDIARRHOEAL SUPPORTIVE CARE
     Dosage: 400 MG, QHS, ORAL; 300 MG, QHS, ORAL
     Route: 048
     Dates: start: 20030528, end: 20030616
  3. CPT-11 (IRINOTECAN) [Concomitant]

REACTIONS (3)
  - MALIGNANT ANORECTAL NEOPLASM [None]
  - MALIGNANT NEOPLASM PROGRESSION [None]
  - PNEUMONIA [None]
